FAERS Safety Report 4906136-0 (Version None)
Quarter: 2006Q1

REPORT INFORMATION
  Report Type: 
  Country: None (occurrence: None)
  Receive Date: 20060206
  Receipt Date: 20060120
  Transmission Date: 20060701
  Serious: Yes (Disabling)
  Sender: FDA-Public Use
  Company Number: DEU-2005-0001782

PATIENT
  Age: 54 Year
  Sex: Male
  Weight: 70 kg

DRUGS (2)
  1. OXYCODONE HCL [Suspect]
     Indication: POLYNEUROPATHY
     Dosage: 20 MG, BID, ORAL; 40 MG, BID, ORAL
     Route: 048
     Dates: start: 20050901
  2. GABAPENTIN [Concomitant]

REACTIONS (3)
  - AGEUSIA [None]
  - ANOSMIA [None]
  - DRY MOUTH [None]
